FAERS Safety Report 19234513 (Version 1)
Quarter: 2021Q2

REPORT INFORMATION
  Report Type: Spontaneous
  Country: IN (occurrence: IN)
  Receive Date: 20210508
  Receipt Date: 20210508
  Transmission Date: 20210717
  Serious: Yes (Hospitalization, Other)
  Sender: FDA-Public Use
  Company Number: IN-JNJFOC-20210513559

PATIENT
  Age: 30 Year
  Sex: Male

DRUGS (5)
  1. ONDANSETRON [Interacting]
     Active Substance: ONDANSETRON
     Indication: HEADACHE
     Dosage: UNK
     Route: 065
  2. METOCLOPRAMIDE. [Interacting]
     Active Substance: METOCLOPRAMIDE
     Indication: HEADACHE
     Dosage: UNK
     Route: 065
  3. TRAMADOL HYDROCHLORIDE. [Suspect]
     Active Substance: TRAMADOL HYDROCHLORIDE
     Indication: HEADACHE
     Dosage: UNK
     Route: 065
  4. ONDANSETRON [Interacting]
     Active Substance: ONDANSETRON
     Indication: INSOMNIA
  5. METOCLOPRAMIDE. [Interacting]
     Active Substance: METOCLOPRAMIDE
     Indication: INSOMNIA

REACTIONS (11)
  - Seizure [Unknown]
  - Fall [Unknown]
  - Muscle rigidity [Unknown]
  - Drug interaction [Unknown]
  - Serotonin syndrome [Recovered/Resolved]
  - Tachycardia [Unknown]
  - Rhabdomyolysis [Recovered/Resolved]
  - Mental status changes [Unknown]
  - Loss of consciousness [Unknown]
  - Disorientation [Unknown]
  - Acute kidney injury [Recovered/Resolved]
